FAERS Safety Report 6759522-0 (Version None)
Quarter: 2010Q2

REPORT INFORMATION
  Report Type: 
  Country: None (occurrence: None)
  Receive Date: 20100603
  Receipt Date: 20100519
  Transmission Date: 20101027
  Serious: Yes (Hospitalization)
  Sender: FDA-Public Use
  Company Number: 2010050059

PATIENT
  Age: 82 Year
  Sex: Female
  Weight: 99 kg

DRUGS (7)
  1. TORSEMIDE [Suspect]
     Dosage: 20 MG (20 MG, 1 IN 1 D), ORAL
     Route: 048
     Dates: start: 20100127, end: 20100411
  2. ALDACTONE [Suspect]
     Dosage: 150 MG (150 MG, 1 IN 1 D), ORAL
     Route: 048
     Dates: start: 20100127, end: 20100411
  3. ACCURETIC (HYDROCHLOROTHIAZIDE, QUINAPRIL HC1) [Suspect]
     Dosage: 25 MG (25 MG, 1 IN 1 D), ORAL
     Route: 048
     Dates: start: 20100127, end: 20100411
  4. METFIN [Concomitant]
  5. LORAZEPAM [Concomitant]
  6. MARCUMAR [Concomitant]
  7. AMLODIPINE [Concomitant]

REACTIONS (3)
  - DRUG INTERACTION [None]
  - HYPERKALAEMIA [None]
  - RENAL FAILURE ACUTE [None]
